FAERS Safety Report 19911045 (Version 15)
Quarter: 2023Q1

REPORT INFORMATION
  Report Type: Spontaneous
  Country: CA (occurrence: CA)
  Receive Date: 20211004
  Receipt Date: 20230328
  Transmission Date: 20230418
  Serious: Yes (Hospitalization, Other)
  Sender: FDA-Public Use
  Company Number: CA-CELLTRION INC.-2021CA013461

PATIENT

DRUGS (27)
  1. INFLECTRA [Suspect]
     Active Substance: INFLIXIMAB-DYYB
     Indication: Colitis ulcerative
     Dosage: 10 MG/KG, 1X DOSE IN HOSPITAL
     Route: 042
     Dates: start: 202106, end: 202106
  2. INFLECTRA [Suspect]
     Active Substance: INFLIXIMAB-DYYB
     Dosage: 600 MG WEEK 0
     Route: 042
     Dates: start: 20210923, end: 20210923
  3. INFLECTRA [Suspect]
     Active Substance: INFLIXIMAB-DYYB
     Dosage: 300 MG
     Route: 042
     Dates: start: 20210927, end: 20210927
  4. INFLECTRA [Suspect]
     Active Substance: INFLIXIMAB-DYYB
     Dosage: 600 MG, Q2,6 WEEKS, THEN EVERY 8 WEEKS
     Route: 042
     Dates: start: 20211012
  5. INFLECTRA [Suspect]
     Active Substance: INFLIXIMAB-DYYB
     Dosage: 600 MG, Q2,6 WEEKS, THEN EVERY 8 WEEKS
     Route: 042
     Dates: start: 20211109
  6. INFLECTRA [Suspect]
     Active Substance: INFLIXIMAB-DYYB
     Dosage: 600 MG, Q2,6 WEEKS, THEN EVERY 8 WEEKS
     Route: 042
     Dates: start: 20211109, end: 20220408
  7. INFLECTRA [Suspect]
     Active Substance: INFLIXIMAB-DYYB
     Dosage: 600 MG, Q2,6 WEEKS, THEN EVERY 8 WEEKS
     Route: 042
     Dates: start: 20211222
  8. INFLECTRA [Suspect]
     Active Substance: INFLIXIMAB-DYYB
     Dosage: 600 MG, Q2,6 WEEKS, THEN EVERY 8 WEEKS
     Route: 042
     Dates: start: 20220216, end: 20220216
  9. INFLECTRA [Suspect]
     Active Substance: INFLIXIMAB-DYYB
     Dosage: 600 MG, Q2,6 WEEKS, THEN EVERY 8 WEEKS
     Route: 042
     Dates: start: 20220408, end: 20220408
  10. INFLECTRA [Suspect]
     Active Substance: INFLIXIMAB-DYYB
     Dosage: 700 MG, EVERY 6 WEEKS
     Route: 042
     Dates: start: 20220519
  11. INFLECTRA [Suspect]
     Active Substance: INFLIXIMAB-DYYB
     Dosage: 700 MG, EVERY 6 WEEKS
     Route: 042
     Dates: start: 20220630
  12. INFLECTRA [Suspect]
     Active Substance: INFLIXIMAB-DYYB
     Dosage: 700 MG, EVERY 6 WEEKS
     Route: 042
     Dates: start: 20220811
  13. INFLECTRA [Suspect]
     Active Substance: INFLIXIMAB-DYYB
     Dosage: 700 MG, EVERY 6 WEEKS
     Route: 042
     Dates: start: 20220922
  14. INFLECTRA [Suspect]
     Active Substance: INFLIXIMAB-DYYB
     Dosage: 700 MG, EVERY 6 WEEKS
     Route: 042
     Dates: start: 20221029
  15. INFLECTRA [Suspect]
     Active Substance: INFLIXIMAB-DYYB
     Dosage: 700 MG, EVERY 6 WEEKS
     Route: 042
     Dates: start: 20221215
  16. ASPIRIN [Concomitant]
     Active Substance: ASPIRIN
     Dosage: 81 MG, FREQUENCY: NOT PROVIDED
     Route: 065
  17. HYDROCHLOROTHIAZIDE [Concomitant]
     Active Substance: HYDROCHLOROTHIAZIDE
     Dosage: 12.5 MG FREQUENCY: NOT PROVIDED (1 DF)
     Route: 065
  18. CANDESARTAN [Concomitant]
     Active Substance: CANDESARTAN
     Dosage: 32 MG, FREQUENCY: NOT PROVIDED
     Route: 065
  19. COLCHICINE [Concomitant]
     Active Substance: COLCHICINE
     Indication: Gout
     Dosage: UNK
  20. COLCHICINE [Concomitant]
     Active Substance: COLCHICINE
     Dosage: 32 MG, FREQUENCY: NOT PROVIDED
     Route: 065
  21. ELIQUIS [Concomitant]
     Active Substance: APIXABAN
     Dosage: UNK
  22. INDOMETHACIN [Concomitant]
     Active Substance: INDOMETHACIN
     Indication: Gout
     Dosage: UNK
  23. INDOMETHACIN [Concomitant]
     Active Substance: INDOMETHACIN
     Dosage: 32 MG, FREQUENCY: NOT PROVIDED
     Route: 065
  24. LOPERAMIDE HYDROCHLORIDE [Concomitant]
     Active Substance: LOPERAMIDE HYDROCHLORIDE
     Dosage: 2 MG
  25. LOPERAMIDE HYDROCHLORIDE [Concomitant]
     Active Substance: LOPERAMIDE HYDROCHLORIDE
     Dosage: 25 MG, FREQUENCY: NOT PROVIDED
     Route: 065
  26. PREDNISONE [Concomitant]
     Active Substance: PREDNISONE
     Dosage: 40MG TAPERING DOWN BY 5MG/WEEK, FREQUENCY NOT PROVIDED, 1 DF
     Route: 065
  27. ROSUVASTATIN [Concomitant]
     Active Substance: ROSUVASTATIN
     Dosage: 40 MG, FREQUENCY: NOT PROVIDED
     Route: 065

REACTIONS (18)
  - Acute kidney injury [Unknown]
  - Diarrhoea haemorrhagic [Unknown]
  - C-reactive protein increased [Unknown]
  - Tooth disorder [Unknown]
  - Frequent bowel movements [Unknown]
  - Clostridium difficile infection [Not Recovered/Not Resolved]
  - Anaemia [Unknown]
  - Weight decreased [Unknown]
  - Blood pressure diastolic decreased [Unknown]
  - Abdominal pain [Unknown]
  - Blood pressure increased [Not Recovered/Not Resolved]
  - Therapeutic product effect incomplete [Unknown]
  - Fistula [Not Recovered/Not Resolved]
  - Weight increased [Unknown]
  - Off label use [Unknown]
  - Off label use [Unknown]
  - Off label use [Unknown]
  - Intentional product use issue [Unknown]

NARRATIVE: CASE EVENT DATE: 20210101
